FAERS Safety Report 11779604 (Version 1)
Quarter: 2015Q4

REPORT INFORMATION
  Report Type: Report from Study
  Country: US (occurrence: US)
  Receive Date: 20151125
  Receipt Date: 20151125
  Transmission Date: 20160304
  Serious: Yes (Hospitalization, Other)
  Sender: FDA-Public Use
  Company Number: US-BRISTOL-MYERS SQUIBB COMPANY-20386454

PATIENT
  Age: 52 Year
  Sex: Female
  Weight: 56.8 kg

DRUGS (1)
  1. IPILIMUMAB [Suspect]
     Active Substance: IPILIMUMAB
     Indication: SQUAMOUS CELL CARCINOMA
     Dosage: LAST DOSE:23JAN2014  DOSAGE:10MG/KG
     Route: 042
     Dates: start: 20140123

REACTIONS (3)
  - Anaemia [Recovered/Resolved]
  - Lymphocyte count decreased [Recovered/Resolved]
  - Pyrexia [Recovered/Resolved]

NARRATIVE: CASE EVENT DATE: 20140202
